FAERS Safety Report 6170452-8 (Version None)
Quarter: 2009Q2

REPORT INFORMATION
  Report Type: 
  Country: None (occurrence: None)
  Receive Date: 20090428
  Receipt Date: 20090208
  Transmission Date: 20091009
  Serious: No
  Sender: FDA-Public Use
  Company Number: US-BAYER-200910500BCC

PATIENT
  Age: 21 Year
  Sex: Female
  Weight: 91 kg

DRUGS (2)
  1. MIDOL [Suspect]
     Indication: DYSMENORRHOEA
     Dosage: UNIT DOSE: 220 MG
     Dates: start: 20090208
  2. MIDOL [Suspect]
     Dosage: UNIT DOSE: 220 MG
     Dates: start: 20090208

REACTIONS (2)
  - DYSMENORRHOEA [None]
  - ORAL DISCOMFORT [None]
